FAERS Safety Report 9441325 (Version 2)
Quarter: 2013Q3

REPORT INFORMATION
  Report Type: Spontaneous
  Country: DE (occurrence: DE)
  Receive Date: 20130805
  Receipt Date: 20130903
  Transmission Date: 20140515
  Serious: Yes (Death, Life-Threatening, Hospitalization)
  Sender: FDA-Public Use
  Company Number: DE-ROCHE-1254026

PATIENT
  Age: 63 Year
  Sex: Male

DRUGS (3)
  1. VEMURAFENIB [Suspect]
     Indication: MALIGNANT MELANOMA
     Route: 065
  2. VEMURAFENIB [Suspect]
     Indication: TUMOUR LYSIS SYNDROME
  3. ALLOPURINOL [Suspect]
     Indication: TUMOUR LYSIS SYNDROME
     Route: 065

REACTIONS (9)
  - Septic shock [Fatal]
  - Leukopenia [Unknown]
  - General physical health deterioration [Unknown]
  - Decreased appetite [Unknown]
  - Tachycardia [Unknown]
  - Headache [Unknown]
  - Diarrhoea [Unknown]
  - Nausea [Unknown]
  - Rash maculo-papular [Unknown]
